FAERS Safety Report 8733652 (Version 2)
Quarter: 2012Q4

REPORT INFORMATION
  Report Type: Report from Study
  Country: TW (occurrence: TW)
  Receive Date: 20120821
  Receipt Date: 20120831
  Transmission Date: 20130627
  Serious: Yes (Hospitalization, Disabling)
  Sender: FDA-Public Use
  Company Number: PHHY2012TW071257

PATIENT
  Sex: Male
  Weight: 68 kg

DRUGS (3)
  1. EXELON [Suspect]
     Indication: DEMENTIA
     Dosage: 4.6 mg
     Route: 062
     Dates: start: 20120202, end: 20120816
  2. NORVASC [Concomitant]
     Indication: HYPERTENSION
     Dosage: 5 mg, UNK
     Dates: start: 20060810
  3. SENNAPUR [Concomitant]
     Indication: CONSTIPATION
     Dosage: 1 DF, BID
     Dates: start: 20060810

REACTIONS (3)
  - Subdural haematoma [Recovered/Resolved with Sequelae]
  - Hemiparesis [Recovered/Resolved with Sequelae]
  - Road traffic accident [Recovered/Resolved with Sequelae]
